FAERS Safety Report 10926203 (Version 6)
Quarter: 2016Q1

REPORT INFORMATION
  Report Type: Report from Study
  Country: US (occurrence: US)
  Receive Date: 20150318
  Receipt Date: 20160129
  Transmission Date: 20160525
  Serious: Yes (Other)
  Sender: FDA-Public Use
  Company Number: US-SA-2014SA149614

PATIENT
  Age: 51 Year
  Sex: Male

DRUGS (9)
  1. AUBAGIO [Suspect]
     Active Substance: TERIFLUNOMIDE
     Indication: MULTIPLE SCLEROSIS
     Route: 048
     Dates: start: 20141013, end: 20151220
  2. AMANTADINE [Concomitant]
     Active Substance: AMANTADINE
  3. PHENTERMINE. [Concomitant]
     Active Substance: PHENTERMINE
  4. CORTICOTROPIN [Concomitant]
     Active Substance: CORTICOTROPIN
     Dates: start: 2015
  5. AMPYRA [Concomitant]
     Active Substance: DALFAMPRIDINE
  6. AUBAGIO [Suspect]
     Active Substance: TERIFLUNOMIDE
     Indication: MULTIPLE SCLEROSIS
     Route: 048
     Dates: start: 20151229
  7. SINGULAIR [Concomitant]
     Active Substance: MONTELUKAST SODIUM
  8. COPAXONE [Concomitant]
     Active Substance: GLATIRAMER ACETATE
     Indication: MULTIPLE SCLEROSIS
     Dates: start: 20130301, end: 20141012
  9. PREDNISONE. [Concomitant]
     Active Substance: PREDNISONE
     Dates: start: 201509

REACTIONS (17)
  - Sensory loss [Unknown]
  - Pyrexia [Unknown]
  - Sinusitis [Unknown]
  - Hypoaesthesia [Not Recovered/Not Resolved]
  - Muscle spasms [Not Recovered/Not Resolved]
  - Stress [Not Recovered/Not Resolved]
  - Pain [Not Recovered/Not Resolved]
  - Pain in extremity [Not Recovered/Not Resolved]
  - Cognitive disorder [Not Recovered/Not Resolved]
  - Activities of daily living impaired [Not Recovered/Not Resolved]
  - Hypoaesthesia [Recovering/Resolving]
  - Visual impairment [Not Recovered/Not Resolved]
  - General physical health deterioration [Unknown]
  - Hand deformity [Not Recovered/Not Resolved]
  - Alopecia [Recovering/Resolving]
  - Musculoskeletal stiffness [Not Recovered/Not Resolved]
  - Fatigue [Not Recovered/Not Resolved]

NARRATIVE: CASE EVENT DATE: 201410
